FAERS Safety Report 23834027 (Version 2)
Quarter: 2024Q2

REPORT INFORMATION
  Report Type: Spontaneous
  Country: AU (occurrence: AU)
  Receive Date: 20240509
  Receipt Date: 20240627
  Transmission Date: 20240716
  Serious: Yes (Other)
  Sender: FDA-Public Use
  Company Number: AU-HALEON-2172016

PATIENT
  Age: 4 Week
  Sex: Male

DRUGS (1)
  1. PANADOL [Suspect]
     Active Substance: ACETAMINOPHEN
     Indication: Product used for unknown indication
     Dosage: EXPDATE:20241130EXPDATE:20241130
     Route: 065

REACTIONS (2)
  - Choking [Unknown]
  - Recalled product administered [Unknown]
